FAERS Safety Report 6184224-1 (Version None)
Quarter: 2009Q2

REPORT INFORMATION
  Report Type: 
  Country: None (occurrence: None)
  Receive Date: 20090508
  Receipt Date: 20090504
  Transmission Date: 20091009
  Serious: Yes (Other)
  Sender: FDA-Public Use
  Company Number: PHEH2009US04395

PATIENT
  Sex: Male

DRUGS (3)
  1. ZOMETA [Suspect]
     Indication: NEOPLASM MALIGNANT
     Dosage: UNK
     Dates: start: 20030101, end: 20070801
  2. ZOMETA [Suspect]
     Indication: RESORPTION BONE INCREASED
  3. ZOMETA [Suspect]
     Indication: OSTEOPOROSIS

REACTIONS (5)
  - ANXIETY [None]
  - DISABILITY [None]
  - INJURY [None]
  - OSTEONECROSIS [None]
  - PAIN [None]
